FAERS Safety Report 12467214 (Version 1)
Quarter: 2016Q2

REPORT INFORMATION
  Report Type: Spontaneous
  Country: NL (occurrence: NL)
  Receive Date: 20160615
  Receipt Date: 20160615
  Transmission Date: 20160815
  Serious: Yes (Disabling)
  Sender: FDA-Public Use
  Company Number: NL-ASTRAZENECA-2016SE61162

PATIENT
  Age: 20401 Day
  Sex: Male
  Weight: 87 kg

DRUGS (2)
  1. QUETIAPINE. [Suspect]
     Active Substance: QUETIAPINE
     Indication: SCHIZOAFFECTIVE DISORDER
     Dosage: 600.0MG UNKNOWN
     Route: 048
     Dates: start: 20120702
  2. QUETIAPINE. [Suspect]
     Active Substance: QUETIAPINE
     Indication: SCHIZOAFFECTIVE DISORDER
     Dosage: 400.0MG UNKNOWN
     Route: 048
     Dates: start: 2013

REACTIONS (3)
  - Torticollis [Not Recovered/Not Resolved]
  - Akathisia [Unknown]
  - Tardive dyskinesia [Not Recovered/Not Resolved]

NARRATIVE: CASE EVENT DATE: 20160119
